FAERS Safety Report 9476518 (Version 1)
Quarter: 2013Q3

REPORT INFORMATION
  Report Type: Spontaneous
  Country: BR (occurrence: BR)
  Receive Date: 20130826
  Receipt Date: 20130826
  Transmission Date: 20140515
  Serious: Yes (Death)
  Sender: FDA-Public Use
  Company Number: BR-B.I. PHARMACEUTICALS,INC./RIDGEFIELD-2013-BR-00947BR

PATIENT
  Sex: Male

DRUGS (1)
  1. SECOTEX [Suspect]

REACTIONS (1)
  - Bronchopneumonia [Fatal]
